FAERS Safety Report 8587154-0 (Version None)
Quarter: 2012Q3

REPORT INFORMATION
  Report Type: 
  Country: None (occurrence: None)
  Receive Date: 20120810
  Receipt Date: 20120712
  Transmission Date: 20120928
  Serious: Yes (Other)
  Sender: FDA-Public Use
  Company Number: JP-009507513-1207JPN007392

PATIENT

DRUGS (3)
  1. PEG-INTRON [Suspect]
     Indication: HEPATITIS C
     Dosage: 1.5MCG/KG/WEEK
     Route: 058
     Dates: start: 20120629
  2. TELAVIC [Suspect]
     Indication: HEPATITIS C
     Route: 048
     Dates: start: 20120629, end: 20120702
  3. REBETOL [Suspect]
     Indication: HEPATITIS C
     Dosage: 800 MG, ONCE
     Route: 048
     Dates: start: 20120629

REACTIONS (3)
  - LYMPHADENOPATHY [None]
  - RASH [None]
  - RASH GENERALISED [None]
